FAERS Safety Report 9002838 (Version 4)
Quarter: 2013Q4

REPORT INFORMATION
  Report Type: Report from Study
  Country: JP (occurrence: JP)
  Receive Date: 20130108
  Receipt Date: 20131126
  Transmission Date: 20140711
  Serious: Yes (Hospitalization)
  Sender: FDA-Public Use
  Company Number: JP-VERTEX PHARMACEUTICALS INC.-2013-000319

PATIENT
  Age: 38 Year
  Sex: Male

DRUGS (10)
  1. VX-950 (TELAPREVIR) [Suspect]
     Indication: CHRONIC HEPATITIS C
     Dosage: 2250 MG, QD
     Route: 048
     Dates: start: 20120308, end: 20120530
  2. RIBAVIRIN [Suspect]
     Indication: CHRONIC HEPATITIS C
     Dosage: 600 MG, QD
     Route: 048
     Dates: start: 20120308, end: 20120321
  3. RIBAVIRIN [Suspect]
     Dosage: 400 MG, QD
     Route: 048
     Dates: start: 20120322, end: 20120328
  4. RIBAVIRIN [Suspect]
     Dosage: 200 MG, QD
     Route: 048
     Dates: start: 20120329, end: 20120509
  5. RIBAVIRIN [Suspect]
     Dosage: 400 MG, QD
     Route: 048
     Dates: start: 20120510, end: 20120613
  6. PEGINTERFERON ALFA-2B [Suspect]
     Indication: CHRONIC HEPATITIS C
     Dosage: 1.4 ?G/KG, QW
     Route: 058
     Dates: start: 20120308, end: 20120314
  7. PEGINTERFERON ALFA-2B [Suspect]
     Dosage: 1.1 ?G/KG, QW
     Route: 058
     Dates: start: 20120315, end: 20120613
  8. URSO [Concomitant]
     Dosage: 600 MG, QD
     Route: 048
  9. PROHEPARUM S [Concomitant]
     Dosage: 6 DF, QD
     Route: 048
  10. URSODEOXYCHOLIC ACID [Concomitant]
     Dosage: 600 MG, QD
     Route: 048

REACTIONS (1)
  - Hyponatraemia [Recovered/Resolved]
